FAERS Safety Report 7472047-2 (Version None)
Quarter: 2011Q2

REPORT INFORMATION
  Report Type: 
  Country: None (occurrence: None)
  Receive Date: 20110511
  Receipt Date: 20101026
  Transmission Date: 20111010
  Serious: No
  Sender: FDA-Public Use
  Company Number: A0890001A

PATIENT
  Sex: Female

DRUGS (2)
  1. TYKERB [Suspect]
     Dosage: 1250MG PER DAY
     Route: 048
     Dates: start: 20100914
  2. XELODA [Suspect]
     Route: 065
     Dates: start: 20100914

REACTIONS (3)
  - RASH GENERALISED [None]
  - NAUSEA [None]
  - BIOPSY SKIN [None]
